FAERS Safety Report 6359528-X (Version None)
Quarter: 2009Q3

REPORT INFORMATION
  Report Type: 
  Country: None (occurrence: None)
  Receive Date: 20090917
  Receipt Date: 20090907
  Transmission Date: 20100115
  Serious: Yes (Hospitalization)
  Sender: FDA-Public Use
  Company Number: GR-ABBOTT-09P-066-0595933-00

PATIENT
  Age: 51 Year
  Sex: Male
  Weight: 74.5 kg

DRUGS (10)
  1. ZEMPLAR [Suspect]
     Indication: HYPERPARATHYROIDISM SECONDARY
     Route: 042
     Dates: start: 20090520
  2. EPREX [Concomitant]
     Indication: DRUG USE FOR UNKNOWN INDICATION
  3. FERROVIN [Concomitant]
     Indication: DRUG USE FOR UNKNOWN INDICATION
  4. SUPERAMIN [Concomitant]
     Indication: DRUG USE FOR UNKNOWN INDICATION
  5. NEUROBION [Concomitant]
     Indication: DRUG USE FOR UNKNOWN INDICATION
  6. NEXIUM [Concomitant]
     Indication: DRUG USE FOR UNKNOWN INDICATION
  7. FILLICINE [Concomitant]
     Indication: DRUG USE FOR UNKNOWN INDICATION
  8. PRILOSEC [Concomitant]
     Indication: DRUG USE FOR UNKNOWN INDICATION
  9. FORSENOL [Concomitant]
     Indication: DRUG USE FOR UNKNOWN INDICATION
  10. MIMPARA [Concomitant]
     Indication: DRUG USE FOR UNKNOWN INDICATION

REACTIONS (1)
  - ANGINA PECTORIS [None]
